FAERS Safety Report 10166651 (Version 3)
Quarter: 2015Q1

REPORT INFORMATION
  Report Type: Spontaneous
  Country: US (occurrence: US)
  Receive Date: 20140512
  Receipt Date: 20150325
  Transmission Date: 20150720
  Serious: No
  Sender: FDA-Public Use
  Company Number: US-BAYER-2014-067140

PATIENT
  Age: 18 Year
  Sex: Female
  Weight: 52.61 kg

DRUGS (1)
  1. SKYLA [Suspect]
     Active Substance: LEVONORGESTREL
     Indication: CONTRACEPTION
     Dosage: 14 MCG/24HR, CONT
     Route: 015
     Dates: start: 20131029, end: 20140430

REACTIONS (3)
  - Drug ineffective [None]
  - Amenorrhoea [None]
  - Pregnancy with contraceptive device [None]

NARRATIVE: CASE EVENT DATE: 201403
